FAERS Safety Report 8241108-2 (Version None)
Quarter: 2012Q1

REPORT INFORMATION
  Report Type: 
  Country: None (occurrence: None)
  Receive Date: 20120328
  Receipt Date: 20120322
  Transmission Date: 20120608
  Serious: Yes (Hospitalization)
  Sender: FDA-Public Use
  Company Number: GB-GLAXOSMITHKLINE-B0737260A

PATIENT
  Sex: Female
  Weight: 85 kg

DRUGS (5)
  1. MABTHERA [Suspect]
     Indication: CHRONIC LYMPHOCYTIC LEUKAEMIA
     Dosage: 950MG PER DAY
     Route: 042
     Dates: start: 20080702
  2. FLUTICASONE PROPIONATE/SALMETEROL [Concomitant]
     Dates: start: 19980101
  3. AMLODIPINE [Concomitant]
     Dosage: 10MG PER DAY
     Dates: start: 20040101
  4. CHLORAMBUCIL [Suspect]
     Indication: CHRONIC LYMPHOCYTIC LEUKAEMIA
     Dosage: 20MG PER DAY
     Route: 048
     Dates: start: 20080702
  5. VENTOLIN DS [Concomitant]
     Dates: start: 19980101

REACTIONS (1)
  - CELLULITIS [None]
